FAERS Safety Report 4472141-4 (Version None)
Quarter: 2004Q4

REPORT INFORMATION
  Report Type: 
  Country: None (occurrence: None)
  Receive Date: 20041007
  Receipt Date: 20040928
  Transmission Date: 20050328
  Serious: No
  Sender: FDA-Public Use
  Company Number: 04H-160-0275221-00

PATIENT
  Sex: 0

DRUGS (1)
  1. DOBUTAMINE HCL [Suspect]
     Indication: STRESS ECHOCARDIOGRAM
     Dosage: 30 MCG/KG/MIN, CONTINUOUS, INTRAVENOUS
     Route: 042

REACTIONS (1)
  - MYOCARDIAL INFARCTION [None]
